FAERS Safety Report 12970744 (Version 1)
Quarter: 2016Q4

REPORT INFORMATION
  Report Type: Spontaneous
  Country: ES (occurrence: ES)
  Receive Date: 20161123
  Receipt Date: 20161123
  Transmission Date: 20170207
  Serious: Yes (Hospitalization, Other)
  Sender: FDA-Public Use
  Company Number: ES-PFIZER INC-2016539319

PATIENT
  Age: 80 Year
  Sex: Female

DRUGS (9)
  1. LEVOTHROID [Concomitant]
     Active Substance: LEVOTHYROXINE SODIUM
     Dosage: 50 UG, 1X/DAY
  2. ZELDOX [Suspect]
     Active Substance: ZIPRASIDONE
     Dosage: 60 MG 1X/DAY
     Route: 048
     Dates: start: 20100916, end: 2010
  3. CYMBALTA [Concomitant]
     Active Substance: DULOXETINE HYDROCHLORIDE
     Indication: DEPRESSION
     Dosage: 60 MG, 1X/DAY
     Route: 048
     Dates: end: 20160314
  4. AKINETON [Concomitant]
     Active Substance: BIPERIDEN HYDROCHLORIDE
     Dosage: UNK UNK, 1X/DAY
  5. ZELDOX [Suspect]
     Active Substance: ZIPRASIDONE
     Dosage: 40 MG, 1X/DAY
     Route: 048
     Dates: start: 20101215, end: 20160317
  6. REXER [Suspect]
     Active Substance: MIRTAZAPINE
     Indication: DEPRESSION
     Dosage: 30 MG/DIA
     Route: 048
     Dates: start: 20101004, end: 20160317
  7. OMEPRAZOLE. [Concomitant]
     Active Substance: OMEPRAZOLE
     Dosage: 20 UNK, 1X/DAY
  8. CO VALS FORTE [Concomitant]
     Active Substance: HYDROCHLOROTHIAZIDE\VALSARTAN
     Dosage: UNK, 1X/DAY
  9. DIAZEPAM PRODES [Concomitant]
     Dosage: 2.5 MG, 2X/DAY

REACTIONS (3)
  - Faecaloma [Unknown]
  - Dizziness [Unknown]
  - Long QT syndrome [Recovered/Resolved]

NARRATIVE: CASE EVENT DATE: 20160313
